FAERS Safety Report 16587255 (Version 2)
Quarter: 2019Q3

REPORT INFORMATION
  Report Type: Spontaneous
  Country: DE (occurrence: DE)
  Receive Date: 20190717
  Receipt Date: 20190730
  Transmission Date: 20191004
  Serious: Yes (Hospitalization, Other)
  Sender: FDA-Public Use
  Company Number: PHHY2019DE163050

PATIENT
  Age: 71 Year
  Sex: Male
  Weight: 68 kg

DRUGS (9)
  1. XUSAL [Concomitant]
     Active Substance: LEVOCETIRIZINE DIHYDROCHLORIDE
     Indication: PRODUCT USED FOR UNKNOWN INDICATION
     Dosage: 0.5 MG, QD (1 TABLETTE TAGLICH SEIT CA. 10 JAHREN)
     Route: 065
     Dates: start: 2009
  2. JODID [Concomitant]
     Active Substance: IODINE
     Indication: PRODUCT USED FOR UNKNOWN INDICATION
     Dosage: 200 UG, QD (1 TABLETTE TAGLICH)
     Route: 065
  3. LISINOPRIL. [Suspect]
     Active Substance: LISINOPRIL
     Indication: VASCULAR GRAFT
     Dosage: 5 MG, QD
     Route: 065
     Dates: start: 2003, end: 2019
  4. PRAVASIN [Suspect]
     Active Substance: PRAVASTATIN SODIUM
     Indication: VASCULAR GRAFT
     Dosage: 20 MG, QD (1 TABLETTE TAGLICH)
     Route: 065
     Dates: start: 2003
  5. TAMSULOSIN [Concomitant]
     Active Substance: TAMSULOSIN
     Indication: PRODUCT USED FOR UNKNOWN INDICATION
     Dosage: 0.4 MG, BID (SEIT CA. 10 JAHREN JEDEN 2. TAG 1 TABLETTE)
     Route: 065
     Dates: start: 2009
  6. LISINOPRIL. [Suspect]
     Active Substance: LISINOPRIL
     Dosage: SEIT EINIGEN WOCHEN 2.5MG - 5MG JE NACH BEDARF
     Route: 065
  7. PRAVASIN [Suspect]
     Active Substance: PRAVASTATIN SODIUM
     Dosage: 10 MG, UNK
     Route: 065
  8. PRAVASIN [Suspect]
     Active Substance: PRAVASTATIN SODIUM
     Dosage: 20 MG, UNK (EINNAHME IN DEN LETZTEN BEIDEN JAHREN)
     Route: 065
  9. AAS PROTECT [Concomitant]
     Active Substance: ASPIRIN
     Indication: VASCULAR GRAFT
     Dosage: 100 MG, QD (1 TABLETTE TAGLICH)
     Route: 065
     Dates: start: 2003

REACTIONS (8)
  - Chills [Unknown]
  - Weight decreased [Unknown]
  - Swelling face [Unknown]
  - Pollakiuria [Unknown]
  - Adverse reaction [Unknown]
  - Dermatitis [Unknown]
  - Blood pressure fluctuation [Unknown]
  - Hypersensitivity [Unknown]
